FAERS Safety Report 11415672 (Version 1)
Quarter: 2015Q3

REPORT INFORMATION
  Report Type: Spontaneous
  Country: US (occurrence: US)
  Receive Date: 20150825
  Receipt Date: 20150825
  Transmission Date: 20151125
  Serious: Yes (Hospitalization)
  Sender: FDA-Public Use
  Company Number: US-BIOGENIDEC-2015BI115762

PATIENT
  Sex: Male

DRUGS (1)
  1. TECFIDERA [Suspect]
     Active Substance: DIMETHYL FUMARATE
     Indication: MULTIPLE SCLEROSIS
     Dates: end: 201508

REACTIONS (4)
  - Pain [Recovered/Resolved]
  - Diabetes mellitus [Not Recovered/Not Resolved]
  - Abdominal pain [Recovered/Resolved]
  - Pancreatitis [Unknown]
